FAERS Safety Report 16059339 (Version 2)
Quarter: 2019Q3

REPORT INFORMATION
  Report Type: Spontaneous
  Country: US (occurrence: US)
  Receive Date: 20190311
  Receipt Date: 20190820
  Transmission Date: 20191004
  Serious: No
  Sender: FDA-Public Use
  Company Number: US-ETHYPHARM-201900542

PATIENT
  Sex: Female

DRUGS (1)
  1. BUPRENORPHINE. [Suspect]
     Active Substance: BUPRENORPHINE
     Indication: DEPENDENCE
     Dosage: 8 MG TID
     Route: 060
     Dates: start: 20190204

REACTIONS (2)
  - Product substitution issue [Recovered/Resolved]
  - Drug ineffective [Recovered/Resolved]
